FAERS Safety Report 12248368 (Version 1)
Quarter: 2016Q2

REPORT INFORMATION
  Report Type: Report from Study
  Country: US (occurrence: US)
  Receive Date: 20160408
  Receipt Date: 20160408
  Transmission Date: 20160815
  Serious: Yes (Death, Other)
  Sender: FDA-Public Use
  Company Number: US-ROCHE-1736513

PATIENT

DRUGS (10)
  1. METHOTREXATE [Suspect]
     Active Substance: METHOTREXATE
     Dosage: DAYS 2 AND 7 OF EACH CYCLE FOR A TOTAL OF 12 DOSES
     Route: 037
  2. CYTARABINE. [Suspect]
     Active Substance: CYTARABINE
     Indication: ACUTE LYMPHOCYTIC LEUKAEMIA
     Route: 065
  3. PONATINIB [Suspect]
     Active Substance: PONATINIB
     Indication: ACUTE LYMPHOCYTIC LEUKAEMIA
     Dosage: FIRST 14 DAYS OF CYCLE 1 THEN CONTINUOUSLY FOR THE NEXT SEVEN CYCLES AND THEN FOR 2 YEARS WITH MONTH
     Route: 048
  4. CYCLOPHOSPHAMIDE. [Suspect]
     Active Substance: CYCLOPHOSPHAMIDE
     Indication: ACUTE LYMPHOCYTIC LEUKAEMIA
     Route: 042
  5. METHOTREXATE [Suspect]
     Active Substance: METHOTREXATE
     Indication: ACUTE LYMPHOCYTIC LEUKAEMIA
     Route: 065
  6. RITUXIMAB [Suspect]
     Active Substance: RITUXIMAB
     Indication: ACUTE LYMPHOCYTIC LEUKAEMIA
     Route: 042
  7. VINCRISTINE [Suspect]
     Active Substance: VINCRISTINE
     Indication: ACUTE LYMPHOCYTIC LEUKAEMIA
     Route: 042
  8. DEXAMETHASONE. [Suspect]
     Active Substance: DEXAMETHASONE
     Indication: ACUTE LYMPHOCYTIC LEUKAEMIA
     Route: 065
  9. CYTARABINE. [Suspect]
     Active Substance: CYTARABINE
     Dosage: DAYS 2 AND 7 OF EACH CYCLE FOR A TOTAL OF 12 DOSES
     Route: 037
  10. DOXORUBICIN [Suspect]
     Active Substance: DOXORUBICIN
     Indication: ACUTE LYMPHOCYTIC LEUKAEMIA
     Route: 042

REACTIONS (22)
  - Sepsis [Fatal]
  - Pulmonary embolism [Unknown]
  - Myocardial infarction [Fatal]
  - Rash [Unknown]
  - Haemorrhage [Unknown]
  - Pericardial effusion [Unknown]
  - Renal vein thrombosis [Unknown]
  - Abdominal pain [Unknown]
  - Aspartate aminotransferase increased [Unknown]
  - Vomiting [Unknown]
  - Hypertension [Unknown]
  - Diarrhoea [Unknown]
  - Pancreatitis [Unknown]
  - Alanine aminotransferase increased [Unknown]
  - Lipase increased [Unknown]
  - Nausea [Unknown]
  - Decreased appetite [Unknown]
  - Amylase increased [Unknown]
  - Mucosal inflammation [Unknown]
  - Renal injury [Unknown]
  - Infection [Unknown]
  - Blood bilirubin increased [Unknown]
